FAERS Safety Report 6429063-9 (Version None)
Quarter: 2009Q4

REPORT INFORMATION
  Report Type: 
  Country: None (occurrence: None)
  Receive Date: 20091105
  Receipt Date: 20091028
  Transmission Date: 20100525
  Serious: Yes (Hospitalization, Other)
  Sender: FDA-Public Use
  Company Number: US-AMGEN-QUU371551

PATIENT
  Sex: Female

DRUGS (9)
  1. ENBREL [Suspect]
     Indication: PSORIASIS
     Dates: start: 20090601, end: 20091001
  2. CELEBREX [Suspect]
  3. LORATADINE [Concomitant]
  4. MULTI-VITAMINS [Concomitant]
  5. CLOBETASOL PROPIONATE [Concomitant]
     Route: 061
  6. SYNTHROID [Concomitant]
  7. NEURONTIN [Concomitant]
  8. CLARITIN [Concomitant]
  9. DOVONEX [Concomitant]

REACTIONS (2)
  - DRUG INTERACTION [None]
  - PULMONARY EMBOLISM [None]
